FAERS Safety Report 8059661-0 (Version None)
Quarter: 2012Q1

REPORT INFORMATION
  Report Type: 
  Country: None (occurrence: None)
  Receive Date: 20120120
  Receipt Date: 20120116
  Transmission Date: 20120608
  Serious: Yes (Other)
  Sender: FDA-Public Use
  Company Number: PHEH2011US010362

PATIENT
  Sex: Male

DRUGS (1)
  1. EXJADE [Suspect]
     Indication: IRON METABOLISM DISORDER
     Dosage: 500 MG, QD
     Route: 048

REACTIONS (4)
  - VOMITING [None]
  - NAUSEA [None]
  - HAEMORRHAGIC DISORDER [None]
  - DRUG INEFFECTIVE [None]
